FAERS Safety Report 15426097 (Version 3)
Quarter: 2020Q2

REPORT INFORMATION
  Report Type: Spontaneous
  Country: US (occurrence: US)
  Receive Date: 20180925
  Receipt Date: 20200424
  Transmission Date: 20200713
  Serious: Yes (Death, Hospitalization, Other)
  Sender: FDA-Public Use
  Company Number: US-009507513-1809USA011045

PATIENT
  Sex: Male
  Weight: 108.2 kg

DRUGS (1)
  1. JANUMET [Suspect]
     Active Substance: METFORMIN HYDROCHLORIDE\SITAGLIPTIN PHOSPHATE
     Indication: PRODUCT USED FOR UNKNOWN INDICATION
     Dosage: 50 (+) 500 MG, TWICE A DAY
     Route: 048
     Dates: start: 20130114, end: 20161203

REACTIONS (19)
  - Asherman^s syndrome [Unknown]
  - Fatigue [Unknown]
  - Metastases to lymph nodes [Unknown]
  - Metastases to nervous system [Unknown]
  - Metastases to peripheral vascular system [Unknown]
  - Septic shock [Unknown]
  - Bile duct cancer [Unknown]
  - Adenocarcinoma pancreas [Fatal]
  - Escherichia infection [Unknown]
  - Cholangitis [Recovered/Resolved]
  - Abnormal faeces [Unknown]
  - Obstruction gastric [Unknown]
  - Jaundice [Recovered/Resolved]
  - Body mass index increased [Unknown]
  - Depression [Unknown]
  - Myalgia [Unknown]
  - Hepatic cancer [Unknown]
  - Clostridium difficile infection [Unknown]
  - Urinary tract infection [Recovered/Resolved]

NARRATIVE: CASE EVENT DATE: 201608
